FAERS Safety Report 9445805 (Version 1)
Quarter: 2013Q3

REPORT INFORMATION
  Report Type: Spontaneous
  Country: GB (occurrence: GB)
  Receive Date: 20130807
  Receipt Date: 20130807
  Transmission Date: 20140515
  Serious: Yes (Other)
  Sender: FDA-Public Use
  Company Number: GB-TEVA-424840USA

PATIENT
  Sex: Male

DRUGS (11)
  1. BENDAMUSTINE [Suspect]
     Indication: B-CELL LYMPHOMA
     Route: 042
     Dates: start: 20121212
  2. BENDAMUSTINE [Suspect]
     Route: 042
  3. RITUXIMAB [Suspect]
     Indication: PRODUCT USED FOR UNKNOWN INDICATION
  4. ONDANSETRON [Concomitant]
  5. DEXAMETHASONE [Concomitant]
  6. DOMPERIDONE [Concomitant]
  7. PARACETAMOL [Concomitant]
  8. CHLORPHENIRAMINE [Concomitant]
  9. HYDROCORTISONE [Concomitant]
  10. CO-CODAMOL [Concomitant]
  11. TRAMADOL [Concomitant]

REACTIONS (3)
  - Ventricular failure [Not Recovered/Not Resolved]
  - Dyspnoea [Not Recovered/Not Resolved]
  - Fatigue [Not Recovered/Not Resolved]
